FAERS Safety Report 18214445 (Version 3)
Quarter: 2020Q4

REPORT INFORMATION
  Report Type: Spontaneous
  Country: US (occurrence: US)
  Receive Date: 20200831
  Receipt Date: 20201021
  Transmission Date: 20210113
  Serious: No
  Sender: FDA-Public Use
  Company Number: US-ASTRAZENECA-2020SF05868

PATIENT
  Age: 70 Year
  Sex: Female
  Weight: 118.8 kg

DRUGS (4)
  1. LISPRO [Concomitant]
     Active Substance: INSULIN LISPRO
     Indication: DIABETES MELLITUS
     Dosage: 26USP UNITS BEFORE MEALS
     Route: 058
  2. LEVEMIR [Concomitant]
     Active Substance: INSULIN DETEMIR
     Indication: DIABETES MELLITUS
     Dosage: 60USP UNITS AT NIGHT
     Route: 058
  3. BYDUREON BCISE [Suspect]
     Active Substance: EXENATIDE
     Indication: DIABETES MELLITUS
     Route: 058
     Dates: start: 201912
  4. BYDUREON [Suspect]
     Active Substance: EXENATIDE
     Indication: DIABETES MELLITUS
     Route: 058
     Dates: start: 201902, end: 201912

REACTIONS (9)
  - Weight increased [Unknown]
  - Appetite disorder [Unknown]
  - Wrong technique in device usage process [Unknown]
  - Visual impairment [Unknown]
  - Malaise [Unknown]
  - Device issue [Unknown]
  - Device leakage [Unknown]
  - Glycosylated haemoglobin increased [Unknown]
  - Device ineffective [Unknown]

NARRATIVE: CASE EVENT DATE: 201912
